FAERS Safety Report 6114998-7 (Version None)
Quarter: 2009Q1

REPORT INFORMATION
  Report Type: 
  Country: None (occurrence: None)
  Receive Date: 20090313
  Receipt Date: 20090305
  Transmission Date: 20090719
  Serious: Yes (Hospitalization)
  Sender: FDA-Public Use
  Company Number: CH-ASTRAZENECA-2009PK00781

PATIENT
  Age: 65 Year
  Sex: Male

DRUGS (7)
  1. BELOC ZOK [Suspect]
     Route: 048
     Dates: end: 20090113
  2. BELOC ZOK [Suspect]
     Route: 048
     Dates: start: 20090114
  3. SINTROM [Concomitant]
  4. COVERSUM [Concomitant]
  5. INEGY [Concomitant]
     Route: 048
  6. PROSCAR [Concomitant]
  7. FOLIC ACID [Concomitant]

REACTIONS (2)
  - ASTHENIA [None]
  - SINUS BRADYCARDIA [None]
